FAERS Safety Report 23145510 (Version 3)
Quarter: 2025Q3

REPORT INFORMATION
  Report Type: Report from Study
  Country: EU (occurrence: EU)
  Receive Date: 20231103
  Receipt Date: 20250918
  Transmission Date: 20251021
  Serious: Yes (Death, Other)
  Sender: TAKEDA
  Company Number: EU-JNJFOC-20231073259

PATIENT
  Age: 66 Year
  Sex: Male

DRUGS (3)
  1. BORTEZOMIB [Suspect]
     Active Substance: BORTEZOMIB
     Indication: Plasma cell myeloma
     Dosage: 2.5 MILLIGRAM, QD
     Dates: end: 20220126
  2. DEXAMETHASONE [Suspect]
     Active Substance: DEXAMETHASONE
     Indication: Plasma cell myeloma
     Dosage: 20 MILLIGRAM, 1/WEEK
     Dates: end: 20220126
  3. DARZALEX [Suspect]
     Active Substance: DARATUMUMAB
     Indication: Plasma cell myeloma
     Dosage: 1200 MILLIGRAM, 1/WEEK
     Dates: end: 20220126

REACTIONS (8)
  - Pulmonary sepsis [Fatal]
  - Circulatory collapse [Fatal]
  - Hepatic cytolysis [Fatal]
  - Plasmacytoma [Fatal]
  - Respiratory failure [Fatal]
  - Acute kidney injury [Fatal]
  - Intentional product use issue [Unknown]
  - Off label use [Unknown]
